FAERS Safety Report 10520963 (Version 2)
Quarter: 2014Q4

REPORT INFORMATION
  Report Type: Report from Study
  Country: IN (occurrence: IN)
  Receive Date: 20141016
  Receipt Date: 20141218
  Transmission Date: 20150528
  Serious: Yes (Other)
  Sender: FDA-Public Use
  Company Number: IN-ROCHE-1474432

PATIENT
  Age: 62 Year
  Sex: Female

DRUGS (5)
  1. ACTEMRA [Suspect]
     Active Substance: TOCILIZUMAB
     Indication: RHEUMATOID ARTHRITIS
     Route: 042
     Dates: start: 20140329
  2. AVIL [Concomitant]
     Active Substance: PHENIRAMINE
     Route: 048
     Dates: start: 20140329
  3. AMLODAC [Concomitant]
     Active Substance: AMLODIPINE BESYLATE
  4. HYDROCORTONE [Concomitant]
     Active Substance: HYDROCORTISONE
     Route: 042
     Dates: start: 20140329
  5. PAN (INDIA) [Concomitant]
     Route: 048

REACTIONS (3)
  - Pyrexia [Recovered/Resolved]
  - Nausea [Recovered/Resolved]
  - Vomiting [Recovered/Resolved]

NARRATIVE: CASE EVENT DATE: 20141008
